FAERS Safety Report 6307888-8 (Version None)
Quarter: 2009Q3

REPORT INFORMATION
  Report Type: 
  Country: None (occurrence: None)
  Receive Date: 20090810
  Receipt Date: 20090801
  Transmission Date: 20100115
  Serious: Yes (Other)
  Sender: FDA-Public Use
  Company Number: 1000007946

PATIENT
  Age: 61 Year
  Sex: Female

DRUGS (11)
  1. BYSTOLIC [Suspect]
     Indication: HYPERTENSION
     Dosage: 10 MG (10 MG, 1 IN 1 D), ORAL
     Route: 048
     Dates: start: 20090714, end: 20090804
  2. DILANTIN [Concomitant]
  3. TIZANIDINE HCL [Concomitant]
  4. ASPIRIN [Concomitant]
  5. NEXIUM [Concomitant]
  6. LEVOTHYROXINE [Concomitant]
  7. VITAMIN A [Concomitant]
  8. VITAMIN B-12 [Concomitant]
  9. CLONAZEPAM [Concomitant]
  10. THEOPHYLLINE [Concomitant]
  11. ZYRTEC [Concomitant]

REACTIONS (3)
  - ANTICONVULSANT DRUG LEVEL INCREASED [None]
  - CONVULSION [None]
  - JOINT DISLOCATION [None]
